FAERS Safety Report 25943175 (Version 1)
Quarter: 2025Q4

REPORT INFORMATION
  Report Type: Spontaneous
  Country: US (occurrence: None)
  Receive Date: 20251020
  Receipt Date: 20251020
  Transmission Date: 20260118
  Serious: Yes (Disabling)
  Sender: FDA-CTU
  Company Number: None

PATIENT
  Age: 22 Year
  Sex: Female
  Weight: 72 kg

DRUGS (1)
  1. SPRAVATO [Suspect]
     Active Substance: ESKETAMINE
     Indication: Depression
     Dosage: FREQUENCY : TWICE A WEEK;?
     Route: 055
     Dates: start: 20251007, end: 20251016

REACTIONS (16)
  - Dizziness [None]
  - Vision blurred [None]
  - Dissociation [None]
  - Headache [None]
  - Pain in extremity [None]
  - Pain in extremity [None]
  - Gait disturbance [None]
  - Blood pressure increased [None]
  - Drug ineffective [None]
  - Muscular weakness [None]
  - Muscular weakness [None]
  - Gait inability [None]
  - Dysstasia [None]
  - General physical health deterioration [None]
  - Mobility decreased [None]
  - Dyskinesia [None]

NARRATIVE: CASE EVENT DATE: 20251009
